FAERS Safety Report 15608919 (Version 3)
Quarter: 2018Q4

REPORT INFORMATION
  Report Type: Spontaneous
  Country: US (occurrence: US)
  Receive Date: 20181112
  Receipt Date: 20181213
  Transmission Date: 20190205
  Serious: No
  Sender: FDA-Public Use
  Company Number: US-SA-2018SA310394

PATIENT
  Age: 54 Year
  Sex: Female

DRUGS (1)
  1. PRALUENT [Suspect]
     Active Substance: ALIROCUMAB
     Indication: OSTEOPOROSIS
     Dosage: 75 MG, QOW
     Route: 058
     Dates: start: 20180301

REACTIONS (2)
  - Arthralgia [Unknown]
  - Musculoskeletal discomfort [Unknown]
